FAERS Safety Report 8967820 (Version 1)
Quarter: 2012Q4

REPORT INFORMATION
  Report Type: 
  Country: US (occurrence: US)
  Receive Date: 20121217
  Receipt Date: 20121217
  Transmission Date: 20130627
  Serious: Yes (Hospitalization)
  Sender: FDA-Public Use
  Company Number: US-BAYER-2012-130439

PATIENT
  Age: 35 Year
  Sex: Female
  Weight: 74.38 kg

DRUGS (1)
  1. SAFYRAL [Suspect]

REACTIONS (1)
  - Subclavian artery thrombosis [None]
